FAERS Safety Report 10227226 (Version 1)
Quarter: 2014Q2

REPORT INFORMATION
  Report Type: Report from Study
  Country: US (occurrence: US)
  Receive Date: 20140610
  Receipt Date: 20140610
  Transmission Date: 20141212
  Serious: Yes (Hospitalization, Other)
  Sender: FDA-Public Use
  Company Number: US-ABBVIE-14P-163-1244215-00

PATIENT
  Age: 38 Year
  Sex: Female

DRUGS (5)
  1. HUMIRA [Suspect]
     Indication: CROHN^S DISEASE
     Dates: start: 20140303
  2. HUMIRA [Suspect]
  3. IMURAN [Concomitant]
     Indication: CROHN^S DISEASE
  4. DICYCLOMINE [Concomitant]
     Indication: PRODUCT USED FOR UNKNOWN INDICATION
     Route: 048
  5. VITAMIN D [Concomitant]
     Indication: PRODUCT USED FOR UNKNOWN INDICATION
     Route: 048

REACTIONS (8)
  - Ascites [Recovered/Resolved]
  - Pelvic abscess [Recovered/Resolved]
  - Pelvic pain [Recovered/Resolved]
  - Erythema [Recovered/Resolved]
  - Crohn^s disease [Recovering/Resolving]
  - Pelvic abscess [Recovered/Resolved]
  - Intestinal mucosal hypertrophy [Not Recovered/Not Resolved]
  - Intestinal dilatation [Not Recovered/Not Resolved]
